FAERS Safety Report 19900446 (Version 1)
Quarter: 2021Q3

REPORT INFORMATION
  Report Type: Spontaneous
  Country: US (occurrence: US)
  Receive Date: 20210929
  Receipt Date: 20210929
  Transmission Date: 20211014
  Serious: No
  Sender: FDA-Public Use
  Company Number: None

PATIENT

DRUGS (5)
  1. DIGOXIN. [Suspect]
     Active Substance: DIGOXIN
  2. BENZTROPINE MESYLATE. [Suspect]
     Active Substance: BENZTROPINE MESYLATE
  3. ATENOLOL TABLETS [Suspect]
     Active Substance: ATENOLOL
  4. CARDIZEM [Suspect]
     Active Substance: DILTIAZEM HYDROCHLORIDE
  5. XARELTO [Suspect]
     Active Substance: RIVAROXABAN

REACTIONS (5)
  - Intercepted product prescribing error [None]
  - Circumstance or information capable of leading to medication error [None]
  - Wrong product administered [None]
  - Product prescribing error [None]
  - Transcription medication error [None]
